FAERS Safety Report 19686828 (Version 1)
Quarter: 2021Q3

REPORT INFORMATION
  Report Type: Spontaneous
  Country: DE (occurrence: DE)
  Receive Date: 20210811
  Receipt Date: 20210811
  Transmission Date: 20211014
  Serious: Yes (Death, Congenital Anomaly, Other)
  Sender: FDA-Public Use
  Company Number: DE-MYLANLABS-2021M1049383

PATIENT
  Age: 1 Day
  Sex: Male
  Weight: 2.95 kg

DRUGS (8)
  1. JANUMET [Concomitant]
     Active Substance: METFORMIN HYDROCHLORIDE\SITAGLIPTIN PHOSPHATE
     Indication: TYPE 2 DIABETES MELLITUS
     Dosage: 1000 [MG/D ] / 50 [MG/D ]
     Route: 064
     Dates: start: 20200317, end: 20200708
  2. VAXIGRIPTETRA [Concomitant]
     Active Substance: INFLUENZA VIRUS VACCINE QUADRIVALENT TYPE A+B
     Indication: IMMUNISATION
     Dosage: UNK
     Route: 064
     Dates: start: 20200916, end: 20200916
  3. L?THYROXIN                         /00068001/ [Concomitant]
     Active Substance: LEVOTHYROXINE
     Indication: HYPOTHYROIDISM
     Dosage: 50 [?G/D ]
     Route: 064
     Dates: start: 20200317, end: 20201125
  4. NOVORAPID [Concomitant]
     Active Substance: INSULIN ASPART
     Indication: TYPE 2 DIABETES MELLITUS
     Dosage: 120 [IE/D ]/ DEPENDING ON BLOOD SUGAR LEVEL (36 TO 120 IE/D)
     Route: 064
     Dates: start: 20200715, end: 20201125
  5. PRESINOL [Concomitant]
     Active Substance: METHYLDOPA
     Indication: HYPERTENSION
     Dosage: 1500 [MG/D ] 3 SEPARATED DOSES
     Route: 064
     Dates: start: 20201112, end: 20201125
  6. CANDESARTAN. [Suspect]
     Active Substance: CANDESARTAN
     Indication: HYPERTENSION
     Dosage: 16 [MG/D ]/ INITIAL 12.5MG DAILY, DOSAGE INCREASED TO 16MG DAILY (UNKNOWN WHEN)
     Route: 064
     Dates: start: 20200317, end: 20201111
  7. HUMINSULIN BASAL [Concomitant]
     Active Substance: INSULIN HUMAN
     Indication: TYPE 2 DIABETES MELLITUS
     Dosage: 66 [IE/D ]/ DEPENDING ON BLOOD SUGAR LEVEL (12 TO 66 IE/D)
     Route: 064
     Dates: start: 20200715, end: 20201125
  8. RHOPHYLAC [Concomitant]
     Active Substance: HUMAN RHO(D) IMMUNE GLOBULIN
     Indication: PROPHYLAXIS AGAINST RH ISOIMMUNISATION
     Dosage: UNK
     Route: 064

REACTIONS (13)
  - Pulmonary hypoplasia [Fatal]
  - Newborn persistent pulmonary hypertension [Not Recovered/Not Resolved]
  - Cranial sutures widening [Not Recovered/Not Resolved]
  - Death neonatal [Fatal]
  - Dysmorphism [Not Recovered/Not Resolved]
  - Oedema neonatal [Not Recovered/Not Resolved]
  - Congenital renal disorder [Fatal]
  - Atrial septal defect [Not Recovered/Not Resolved]
  - Foetal exposure during pregnancy [Recovered/Resolved]
  - Joint contracture [Not Recovered/Not Resolved]
  - Renal vein thrombosis [Not Recovered/Not Resolved]
  - Patent ductus arteriosus [Not Recovered/Not Resolved]
  - Pancreatic islets hyperplasia [Not Recovered/Not Resolved]

NARRATIVE: CASE EVENT DATE: 20201125
